FAERS Safety Report 16377820 (Version 1)
Quarter: 2019Q2

REPORT INFORMATION
  Report Type: Spontaneous
  Country: US (occurrence: US)
  Receive Date: 20190408
  Receipt Date: 20190408
  Transmission Date: 20190711
  Serious: Yes (Hospitalization)
  Sender: FDA-Public Use
  Company Number: None

PATIENT
  Age: 55 Year
  Sex: Female

DRUGS (7)
  1. NEULASTA [Suspect]
     Active Substance: PEGFILGRASTIM
     Indication: NEOPLASM MALIGNANT
     Dosage: ?          OTHER FREQUENCY:EVERY OTHER;?
     Route: 058
  2. NEULASTA [Suspect]
     Active Substance: PEGFILGRASTIM
     Indication: AGRANULOCYTOSIS
     Dosage: ?          OTHER FREQUENCY:EVERY OTHER;?
     Route: 058
  3. PROCHLORPERAZINE 10MG TABLETS [Concomitant]
     Dates: start: 20190405
  4. LANTUS SOLORSTAR 100/ML [Concomitant]
     Dates: start: 20180717
  5. BD PEN NEEDLES 31GX8MM [Concomitant]
     Dates: start: 20180717
  6. METFORMIN [Concomitant]
     Active Substance: METFORMIN HYDROCHLORIDE
     Dates: start: 20181228
  7. XARELTO [Concomitant]
     Active Substance: RIVAROXABAN
     Dates: start: 20190205

REACTIONS (3)
  - Fatigue [None]
  - Carcinoid tumour of the pancreas [None]
  - Bone pain [None]

NARRATIVE: CASE EVENT DATE: 20181109
